FAERS Safety Report 23405405 (Version 4)
Quarter: 2024Q3

REPORT INFORMATION
  Report Type: Spontaneous
  Country: DK (occurrence: DK)
  Receive Date: 20240116
  Receipt Date: 20240703
  Transmission Date: 20241016
  Serious: Yes (Other)
  Sender: CSL BEHRING
  Company Number: DK-BEH-2024167413

PATIENT
  Age: 50 Year
  Sex: Female

DRUGS (3)
  1. ALBUMIN HUMAN [Suspect]
     Active Substance: ALBUMIN HUMAN
     Indication: Product used for unknown indication
     Route: 065
  2. ALBUMIN HUMAN [Suspect]
     Active Substance: ALBUMIN HUMAN
     Indication: Skin test
     Route: 023
  3. ALBUMIN HUMAN [Suspect]
     Active Substance: ALBUMIN HUMAN
     Indication: Skin test
     Dosage: UNK
     Route: 061

REACTIONS (4)
  - Type I hypersensitivity [Unknown]
  - Hypotension [Unknown]
  - Flushing [Unknown]
  - Skin test positive [Unknown]
